FAERS Safety Report 25623613 (Version 2)
Quarter: 2025Q3

REPORT INFORMATION
  Report Type: Spontaneous
  Country: JP (occurrence: JP)
  Receive Date: 20250730
  Receipt Date: 20250806
  Transmission Date: 20251021
  Serious: Yes (Other)
  Sender: EISAI
  Company Number: JP-Eisai-EC-2025-194125

PATIENT
  Age: 77 Year
  Sex: Male

DRUGS (4)
  1. LENVIMA [Suspect]
     Active Substance: LENVATINIB
     Indication: Papillary thyroid cancer
     Dates: start: 20250403, end: 20250406
  2. LENVIMA [Suspect]
     Active Substance: LENVATINIB
     Dates: start: 20250409, end: 20250501
  3. LENVIMA [Suspect]
     Active Substance: LENVATINIB
     Dates: start: 20250509, end: 20250605
  4. LENVIMA [Suspect]
     Active Substance: LENVATINIB

REACTIONS (1)
  - Tracheal fistula [Not Recovered/Not Resolved]

NARRATIVE: CASE EVENT DATE: 20250101
